FAERS Safety Report 9458988 (Version 1)
Quarter: 2013Q3

REPORT INFORMATION
  Report Type: Spontaneous
  Country: FR (occurrence: FR)
  Receive Date: 20130814
  Receipt Date: 20130814
  Transmission Date: 20140515
  Serious: Yes (Hospitalization, Other)
  Sender: FDA-Public Use
  Company Number: FR-PFIZER INC-2013231039

PATIENT
  Age: 79 Year
  Sex: Female

DRUGS (6)
  1. EFFEXOR LP [Suspect]
     Dosage: 37.5 MG, 1X/DAY
     Route: 048
     Dates: start: 20071223, end: 20080107
  2. DEROXAT [Interacting]
     Dosage: 1 DF, DAILY
     Route: 048
     Dates: start: 20080107, end: 20080108
  3. DEROXAT [Interacting]
     Dosage: UNK
  4. SINEMET [Concomitant]
     Dosage: UNK
  5. PREVISCAN [Concomitant]
     Dosage: 5 MG, DAILY
  6. CORDARONE [Concomitant]
     Dosage: UNK

REACTIONS (10)
  - Confusional state [Recovered/Resolved]
  - Pyrexia [Unknown]
  - Delirium [Unknown]
  - Gait disturbance [Unknown]
  - Drug interaction [Unknown]
  - Fall [Unknown]
  - Disease progression [Unknown]
  - Psychomotor hyperactivity [Unknown]
  - Normochromic normocytic anaemia [Unknown]
  - Inflammation [Unknown]
